FAERS Safety Report 6356169-5 (Version None)
Quarter: 2009Q3

REPORT INFORMATION
  Report Type: 
  Country: None (occurrence: None)
  Receive Date: 20090914
  Receipt Date: 20090914
  Transmission Date: 20100115
  Serious: No
  Sender: FDA-Public Use
  Company Number: None

PATIENT
  Age: 60 Year
  Sex: Male
  Weight: 65.7716 kg

DRUGS (1)
  1. KAPIDEX [Suspect]
     Indication: DYSPEPSIA
     Dates: start: 20090327, end: 20090429

REACTIONS (1)
  - DIARRHOEA [None]
